FAERS Safety Report 21935614 (Version 2)
Quarter: 2023Q1

REPORT INFORMATION
  Report Type: Report from Study
  Country: GB (occurrence: GB)
  Receive Date: 20230201
  Receipt Date: 20230205
  Transmission Date: 20230418
  Serious: Yes (Other)
  Sender: FDA-Public Use
  Company Number: GB-002147023-NVSC2023GB019531

PATIENT
  Age: 68 Year
  Sex: Female

DRUGS (1)
  1. KISQALI [Suspect]
     Active Substance: RIBOCICLIB
     Indication: Breast cancer
     Dosage: UNK
     Route: 065
     Dates: start: 202209

REACTIONS (2)
  - Renal impairment [Unknown]
  - Malaise [Unknown]

NARRATIVE: CASE EVENT DATE: 20230125
